FAERS Safety Report 13244692 (Version 1)
Quarter: 2017Q1

REPORT INFORMATION
  Report Type: Spontaneous
  Country: US (occurrence: US)
  Receive Date: 20170216
  Receipt Date: 20170216
  Transmission Date: 20170428
  Serious: No
  Sender: FDA-Public Use
  Company Number: US-JAZZ-2017-US-001242

PATIENT
  Sex: Female

DRUGS (25)
  1. IBUPROFEN. [Concomitant]
     Active Substance: IBUPROFEN
  2. CLONAZEPAM. [Concomitant]
     Active Substance: CLONAZEPAM
  3. LEVOTHYROXINE. [Concomitant]
     Active Substance: LEVOTHYROXINE
  4. PRAMIPEXOLE. [Concomitant]
     Active Substance: PRAMIPEXOLE
  5. PROZAC [Concomitant]
     Active Substance: FLUOXETINE HYDROCHLORIDE
  6. XYREM [Suspect]
     Active Substance: SODIUM OXYBATE
     Indication: NARCOLEPSY
     Dosage: 2.25G, BID
     Route: 048
     Dates: start: 201601, end: 2016
  7. XYREM [Suspect]
     Active Substance: SODIUM OXYBATE
     Dosage: 3 G, BID
     Route: 048
     Dates: start: 201602, end: 2016
  8. XYREM [Suspect]
     Active Substance: SODIUM OXYBATE
     Dosage: 4.5G, BID
     Route: 048
     Dates: start: 201605, end: 2016
  9. FUROSEMIDE. [Concomitant]
     Active Substance: FUROSEMIDE
  10. VITAMIN B12 [Concomitant]
     Active Substance: CYANOCOBALAMIN
  11. PERCOCET [Concomitant]
     Active Substance: ACETAMINOPHEN\OXYCODONE HYDROCHLORIDE
  12. TRAMADOL HCL [Concomitant]
     Active Substance: TRAMADOL HYDROCHLORIDE
  13. TRIAMCINOLONE [Concomitant]
     Active Substance: TRIAMCINOLONE
  14. ZOLPIDEM TARTRATE. [Concomitant]
     Active Substance: ZOLPIDEM TARTRATE
  15. DICLOFENAC SODIUM. [Concomitant]
     Active Substance: DICLOFENAC SODIUM
  16. CICLOPIROX. [Concomitant]
     Active Substance: CICLOPIROX
  17. CLINDAMYCIN PHOSPHATE. [Concomitant]
     Active Substance: CLINDAMYCIN PHOSPHATE
  18. DOXYCYCLINE HYCLATE. [Concomitant]
     Active Substance: DOXYCYCLINE HYCLATE
  19. NUCYNTA [Concomitant]
     Active Substance: TAPENTADOL HYDROCHLORIDE
  20. CYANOCOBALAMIN. [Concomitant]
     Active Substance: CYANOCOBALAMIN
  21. DICLOFENAC SODICO                  /00372301/ [Concomitant]
  22. PROAIR HFA [Concomitant]
     Active Substance: ALBUTEROL SULFATE
  23. PULMICORT TURBUHALER [Concomitant]
     Active Substance: BUDESONIDE
  24. VYVANSE [Concomitant]
     Active Substance: LISDEXAMFETAMINE DIMESYLATE
  25. FIORICET [Concomitant]
     Active Substance: ACETAMINOPHEN\BUTALBITAL\CAFFEINE

REACTIONS (2)
  - Headache [Unknown]
  - Nausea [Unknown]
